FAERS Safety Report 18876969 (Version 1)
Quarter: 2021Q1

REPORT INFORMATION
  Report Type: Spontaneous
  Country: US (occurrence: US)
  Receive Date: 20210209
  Receipt Date: 20210209
  Transmission Date: 20210420
  Serious: Yes (Death)
  Sender: FDA-Public Use
  Company Number: None

PATIENT
  Age: 86 Year
  Sex: Male

DRUGS (1)
  1. ENOXAPARIN PFS 120MG/0.8ML [Suspect]
     Active Substance: ENOXAPARIN
     Route: 058
     Dates: start: 202007, end: 202102

REACTIONS (1)
  - Death [None]
